FAERS Safety Report 6048646-1 (Version None)
Quarter: 2009Q1

REPORT INFORMATION
  Report Type: 
  Country: None (occurrence: None)
  Receive Date: 20090123
  Receipt Date: 20090113
  Transmission Date: 20090719
  Serious: Yes (Hospitalization)
  Sender: FDA-Public Use
  Company Number: JP-ELI_LILLY_AND_COMPANY-JP200901002519

PATIENT
  Sex: Male

DRUGS (13)
  1. HUMALOG [Suspect]
     Dosage: 4 IU, EACH MORNING
     Route: 058
     Dates: end: 20090108
  2. HUMALOG [Suspect]
     Dosage: 2 IU, DAILY (1/D)
     Route: 058
     Dates: end: 20090108
  3. HUMALOG [Suspect]
     Dosage: 4 IU, EACH EVENING
     Route: 058
     Dates: end: 20090108
  4. HUMALOG [Suspect]
     Dosage: 4 IU, EACH MORNING
     Route: 058
     Dates: start: 20090109
  5. HUMALOG [Suspect]
     Dosage: 2 IU, DAILY (1/D)
     Route: 058
     Dates: start: 20090109
  6. HUMALOG [Suspect]
     Dosage: 4 IU, EACH EVENING
     Route: 058
     Dates: start: 20090109, end: 20090111
  7. HUMALOG [Suspect]
     Dosage: 6 IU, EACH EVENING
     Route: 058
     Dates: start: 20090112
  8. LANTUS [Concomitant]
     Dosage: 8 IU, EACH MORNING
     Route: 058
  9. MOBIC [Concomitant]
     Route: 048
  10. BASEN [Concomitant]
     Route: 048
  11. STARSIS [Concomitant]
     Route: 048
  12. ANTIHYPERTENSIVES [Concomitant]
  13. ANTIARRHYTHMICS, CLASS I AND III [Concomitant]

REACTIONS (3)
  - BLOOD GLUCOSE INCREASED [None]
  - HOSPITALISATION [None]
  - OCULAR HYPERAEMIA [None]
